FAERS Safety Report 10043793 (Version 1)
Quarter: 2014Q1

REPORT INFORMATION
  Report Type: Spontaneous
  Country: US (occurrence: US)
  Receive Date: 20140328
  Receipt Date: 20140328
  Transmission Date: 20141002
  Serious: Yes (Other)
  Sender: FDA-Public Use
  Company Number: US-GALDERMA-US13000807

PATIENT
  Age: 48 Year
  Sex: Female

DRUGS (1)
  1. CLOBETASOL PROPIONATE (CLOBETASOL PROPIONATE) SHAMPOO, 0.05% [Suspect]
     Dates: start: 20130220

REACTIONS (1)
  - Alopecia [Unknown]
